FAERS Safety Report 26080541 (Version 1)
Quarter: 2025Q4

REPORT INFORMATION
  Report Type: Spontaneous
  Country: US (occurrence: US)
  Receive Date: 20251124
  Receipt Date: 20251124
  Transmission Date: 20260117
  Serious: Yes (Hospitalization)
  Sender: SAGENT PHARMACEUTICALS
  Company Number: US-SAGENT PHARMACEUTICALS-2025SAG000081

PATIENT

DRUGS (2)
  1. FLUDARABINE PHOSPHATE [Suspect]
     Active Substance: FLUDARABINE PHOSPHATE
     Indication: Lymphodepletion
     Dosage: 25 MG/M2
     Route: 042
     Dates: start: 20250513, end: 20250517
  2. CYCLOPHOSPHAMIDE [Suspect]
     Active Substance: CYCLOPHOSPHAMIDE
     Indication: Lymphodepletion
     Dosage: 60 MILLIGRAM/KILOGRAM, QD
     Route: 042
     Dates: start: 20250511, end: 20250512

REACTIONS (1)
  - Febrile neutropenia [Recovered/Resolved]

NARRATIVE: CASE EVENT DATE: 20251008
